FAERS Safety Report 9305439 (Version 2)
Quarter: 2013Q2

REPORT INFORMATION
  Report Type: Report from Study
  Country: US (occurrence: US)
  Receive Date: 20130523
  Receipt Date: 20130613
  Transmission Date: 20140414
  Serious: No
  Sender: FDA-Public Use
  Company Number: US-VERTEX PHARMACEUTICALS INC-2013-006320

PATIENT
  Age: 35 Year
  Sex: Male
  Weight: 62 kg

DRUGS (3)
  1. VX-950 (TELAPREVIR) [Suspect]
     Indication: HEPATITIS C
     Dosage: 750 MG, TID
     Dates: start: 20130514
  2. RIBAVIRIN [Suspect]
     Indication: HEPATITIS C
     Dosage: 400 MG, BID
     Dates: start: 20130514
  3. PEGINTRON [Suspect]
     Indication: HEPATITIS C
     Dosage: 120 ?G, WEEKLY
     Route: 058
     Dates: start: 20130514

REACTIONS (7)
  - Ocular hyperaemia [Recovered/Resolved]
  - Eye irritation [Recovered/Resolved]
  - Pain [Unknown]
  - Malaise [Recovered/Resolved]
  - Fatigue [Not Recovered/Not Resolved]
  - Rash pruritic [Recovered/Resolved]
  - Haemorrhoids [Recovered/Resolved]
